FAERS Safety Report 9948753 (Version 2)
Quarter: 2014Q2

REPORT INFORMATION
  Report Type: Spontaneous
  Country: US (occurrence: None)
  Receive Date: 20140122
  Receipt Date: 20140421
  Transmission Date: 20141212
  Serious: Yes (Other)
  Sender: FDA-Public Use
  Company Number: AEGR000178

PATIENT
  Age: 28 Year
  Sex: Male
  Weight: 123.8 kg

DRUGS (5)
  1. JUXTAPID [Suspect]
     Indication: TYPE IIA HYPERLIPIDAEMIA
     Route: 048
     Dates: start: 20130920, end: 201311
  2. ATORVASTATIN (ATORVASTATIN) [Concomitant]
  3. LOSARTAN (LOSARTAN) [Concomitant]
  4. VITAMIN E (TOCOPHERYL ACID SUCCINATE) [Concomitant]
  5. OMEGA 3-6-9 (FISH OIL, TOPCOPHEROL) [Concomitant]

REACTIONS (6)
  - Hepatic enzyme increased [None]
  - Diarrhoea [None]
  - Dizziness [None]
  - Gastrointestinal pain [None]
  - Alanine aminotransferase increased [None]
  - Aspartate aminotransferase increased [None]
